FAERS Safety Report 20664013 (Version 1)
Quarter: 2022Q2

REPORT INFORMATION
  Report Type: Spontaneous
  Country: US (occurrence: US)
  Receive Date: 20220401
  Receipt Date: 20220401
  Transmission Date: 20220720
  Serious: Yes (Other)
  Sender: FDA-Public Use
  Company Number: US-BRISTOL-MYERS SQUIBB COMPANY-2022-012648

PATIENT
  Age: 74 Year
  Sex: Male

DRUGS (18)
  1. REVLIMID [Suspect]
     Active Substance: LENALIDOMIDE
     Indication: Plasma cell myeloma
     Route: 048
     Dates: start: 20211220
  2. VITAMIN C [Concomitant]
     Active Substance: ASCORBIC ACID
  3. ZOLPIDEM [Concomitant]
     Active Substance: ZOLPIDEM TARTRATE
  4. XARELTO [Concomitant]
     Active Substance: RIVAROXABAN
  5. ACETAMINOPHEN\OXYCODONE HYDROCHLORIDE [Concomitant]
     Active Substance: ACETAMINOPHEN\OXYCODONE HYDROCHLORIDE
     Dosage: 5-325 MG
  6. LUTEIN [Concomitant]
     Active Substance: LUTEIN
  7. LOSARTAN [Concomitant]
     Active Substance: LOSARTAN
  8. LORAZEPAM [Concomitant]
     Active Substance: LORAZEPAM
  9. LEVOTHYROXINE [Concomitant]
     Active Substance: LEVOTHYROXINE
  10. DEXAMETHASONE [Concomitant]
     Active Substance: DEXAMETHASONE
  11. PRASTERONE [Concomitant]
     Active Substance: PRASTERONE
  12. ATORVASTATIN [Concomitant]
     Active Substance: ATORVASTATIN
  13. VITAMIN A [Concomitant]
     Active Substance: VITAMIN A
  14. OMEGA 3 [Concomitant]
     Active Substance: CAPSAICIN
  15. Glucosamine Chondr [Concomitant]
     Dosage: 250/200 MG
  16. Coenzyme Q-10 [Concomitant]
     Dosage: 250/200 MG
  17. ALBUTEROL SULFATE [Concomitant]
     Active Substance: ALBUTEROL SULFATE
     Dosage: 200 PUFFS
     Route: 055
  18. FENTANYL [Concomitant]
     Active Substance: FENTANYL
     Dosage: 200 PUFFS
     Route: 055

REACTIONS (1)
  - Systemic infection [Unknown]

NARRATIVE: CASE EVENT DATE: 20220310
